FAERS Safety Report 8385914-2 (Version None)
Quarter: 2012Q2

REPORT INFORMATION
  Report Type: 
  Country: None (occurrence: None)
  Receive Date: 20120523
  Receipt Date: 20120506
  Transmission Date: 20120825
  Serious: Yes (Death)
  Sender: FDA-Public Use
  Company Number: 2012P1003756

PATIENT
  Age: 56 Year
  Sex: Male

DRUGS (16)
  1. NICOTINE [Concomitant]
  2. COLACE [Concomitant]
  3. FENTANYL-50 [Suspect]
     Dosage: 1 PATCH; Q72HR; TDER
     Route: 062
  4. FERROUS SULFATE TAB [Concomitant]
  5. ZYPREXA [Concomitant]
  6. TYLENOL [Concomitant]
  7. OXYCODONE HYDROCHLORIDE [Concomitant]
  8. AMBIEN [Concomitant]
  9. VITAMIN [Concomitant]
  10. NEPHROCAPS [Concomitant]
  11. PRILOSEC [Concomitant]
  12. NEURONTIN [Concomitant]
  13. PHOSLO [Concomitant]
  14. LACTULOSE [Concomitant]
  15. CLONIDINE [Concomitant]
  16. SENNA-GEN [Concomitant]

REACTIONS (23)
  - OVERDOSE [None]
  - BACTERIAL TEST POSITIVE [None]
  - HEPATIC CONGESTION [None]
  - FATIGUE [None]
  - MULTIPLE INJURIES [None]
  - PROTEUS TEST POSITIVE [None]
  - ANXIETY [None]
  - PULMONARY CONGESTION [None]
  - TOXICITY TO VARIOUS AGENTS [None]
  - DRUG INEFFECTIVE [None]
  - ESCHERICHIA TEST POSITIVE [None]
  - APNOEA [None]
  - CYANOSIS [None]
  - CARDIAC ARREST [None]
  - AORTIC ARTERIOSCLEROSIS [None]
  - GAIT DISTURBANCE [None]
  - SCAR [None]
  - RENAL VENOUS CONGESTION [None]
  - ARTERIOSCLEROSIS [None]
  - OEDEMA PERIPHERAL [None]
  - PUPIL FIXED [None]
  - PULMONARY OEDEMA [None]
  - ACCIDENTAL DEATH [None]
